FAERS Safety Report 22034454 (Version 2)
Quarter: 2023Q1

REPORT INFORMATION
  Report Type: Spontaneous
  Country: US (occurrence: US)
  Receive Date: 20230224
  Receipt Date: 20230301
  Transmission Date: 20230417
  Serious: No
  Sender: FDA-Public Use
  Company Number: US-SANOFI-01503429

PATIENT
  Age: 79 Year
  Sex: Female

DRUGS (1)
  1. LANTUS SOLOSTAR [Suspect]
     Active Substance: INSULIN GLARGINE
     Indication: Type 2 diabetes mellitus
     Dosage: 18 IU QD DRUG TREATMENT DURATION:MORE THAN 6 YEARS
     Route: 065

REACTIONS (4)
  - Confusional state [Unknown]
  - Nervousness [Unknown]
  - Panic attack [Unknown]
  - Visual impairment [Unknown]

NARRATIVE: CASE EVENT DATE: 20190101
